FAERS Safety Report 19652224 (Version 1)
Quarter: 2021Q3

REPORT INFORMATION
  Report Type: Spontaneous
  Country: CN (occurrence: CN)
  Receive Date: 20210803
  Receipt Date: 20210803
  Transmission Date: 20211014
  Serious: Yes (Other)
  Sender: FDA-Public Use
  Company Number: CN-TAKEDA-2021TUS046661

PATIENT
  Age: 83 Year
  Sex: Male

DRUGS (1)
  1. HUMAN ALBUMIN [Suspect]
     Active Substance: ALBUMIN HUMAN
     Indication: NEOPLASM MALIGNANT
     Dosage: 10 GRAM, QD
     Route: 042
     Dates: start: 20210709, end: 20210710

REACTIONS (3)
  - Product use in unapproved indication [Unknown]
  - Rash [Recovered/Resolved]
  - Pruritus [Recovered/Resolved]

NARRATIVE: CASE EVENT DATE: 20210710
